FAERS Safety Report 5685650-7 (Version None)
Quarter: 2008Q1

REPORT INFORMATION
  Report Type: 
  Country: None (occurrence: None)
  Receive Date: 20080328
  Receipt Date: 20070906
  Transmission Date: 20080703
  Serious: No
  Sender: FDA-Public Use
  Company Number: US-BAYER-US-2007-033627

PATIENT
  Age: 40 Year
  Sex: Female
  Weight: 77 kg

DRUGS (4)
  1. MIRENA [Suspect]
     Indication: HYPOMENORRHOEA
     Route: 015
     Dates: start: 20070701
  2. TOPROL-XL [Concomitant]
     Indication: HYPERTENSION
     Dosage: UNIT DOSE: 50 MG
     Dates: start: 20020101
  3. DYAZIDE [Concomitant]
     Indication: HYPERTENSION
     Dates: start: 20020101
  4. ZOLOFT [Concomitant]
     Indication: DEPRESSION
     Dosage: UNIT DOSE: 50 MG
     Dates: start: 20020101

REACTIONS (1)
  - ALOPECIA [None]
